FAERS Safety Report 7011841-9 (Version None)
Quarter: 2010Q3

REPORT INFORMATION
  Report Type: 
  Country: None (occurrence: None)
  Receive Date: 20100923
  Receipt Date: 20100128
  Transmission Date: 20110219
  Serious: No
  Sender: FDA-Public Use
  Company Number: US-WYE-H13303210

PATIENT
  Age: 51 Year
  Sex: Female
  Weight: 70.37 kg

DRUGS (4)
  1. ADVIL PM [Suspect]
     Indication: INSOMNIA
     Dosage: 2 CAPSULE EVERY 1 SEC
     Route: 048
     Dates: start: 20080101, end: 20100127
  2. ZOLOFT [Concomitant]
  3. KLONOPIN [Concomitant]
  4. VYTORIN [Concomitant]

REACTIONS (1)
  - LIPIDS INCREASED [None]
